FAERS Safety Report 21627422 (Version 1)
Quarter: 2022Q4

REPORT INFORMATION
  Report Type: Spontaneous
  Country: FR (occurrence: FR)
  Receive Date: 20221122
  Receipt Date: 20221122
  Transmission Date: 20230113
  Serious: Yes (Other)
  Sender: FDA-Public Use
  Company Number: None

PATIENT
  Age: 54 Year
  Sex: Female
  Weight: 78 kg

DRUGS (2)
  1. LEVOTHYROXINE [Suspect]
     Active Substance: LEVOTHYROXINE
     Indication: Thyroidectomy
     Dosage: NOT PRECISED, SCORED TABLET
     Route: 048
     Dates: start: 20110829
  2. LEVOTHYROXINE SODIUM [Suspect]
     Active Substance: LEVOTHYROXINE SODIUM
     Indication: Hypothyroidism
     Dosage: NOT PRECISED
     Route: 048

REACTIONS (14)
  - Colitis [Unknown]
  - Visual impairment [Unknown]
  - Hypertension [Unknown]
  - Alopecia [Unknown]
  - Disturbance in attention [Unknown]
  - Asthenia [Unknown]
  - Tinnitus [Unknown]
  - Blood thyroid stimulating hormone abnormal [Unknown]
  - Dyspnoea [Unknown]
  - Weight increased [Unknown]
  - Insomnia [Unknown]
  - Muscle spasms [Unknown]
  - Headache [Unknown]
  - Diarrhoea [Unknown]

NARRATIVE: CASE EVENT DATE: 20180811
